FAERS Safety Report 23847412 (Version 1)
Quarter: 2024Q2

REPORT INFORMATION
  Report Type: Spontaneous
  Country: US (occurrence: US)
  Receive Date: 20240513
  Receipt Date: 20240513
  Transmission Date: 20240716
  Serious: No
  Sender: FDA-Public Use
  Company Number: US-ALKEM LABORATORIES LIMITED-US-ALKEM-2023-11053

PATIENT

DRUGS (2)
  1. AZATHIOPRINE [Suspect]
     Active Substance: AZATHIOPRINE
     Indication: Hypophysitis
     Dosage: UNK (LESS THAN 1 MONTH)
     Route: 065
  2. CERTOLIZUMAB [Concomitant]
     Active Substance: CERTOLIZUMAB
     Indication: Hypophysitis
     Dosage: UNK
     Route: 065

REACTIONS (1)
  - Nausea [Unknown]
